FAERS Safety Report 7740512-6 (Version None)
Quarter: 2011Q3

REPORT INFORMATION
  Report Type: 
  Country: None (occurrence: None)
  Receive Date: 20110909
  Receipt Date: 20110906
  Transmission Date: 20111222
  Serious: Yes (Hospitalization, Other)
  Sender: FDA-Public Use
  Company Number: US-PFIZER INC-2011208553

PATIENT
  Sex: Female
  Weight: 113 kg

DRUGS (11)
  1. ZOLOFT [Suspect]
     Dosage: UNK
     Route: 048
     Dates: end: 20110101
  2. SEROQUEL [Suspect]
     Indication: DEPRESSION
     Dosage: 150 MG, DAILY
     Route: 048
     Dates: start: 20110101
  3. SEROQUEL [Suspect]
     Indication: ANXIETY
  4. WELLBUTRIN [Suspect]
     Indication: ANXIETY
  5. PRISTIQ [Suspect]
     Dosage: UNK
     Route: 048
  6. PRISTIQ [Suspect]
     Indication: DEPRESSION
     Dosage: 50 MG, DAILY
     Route: 048
     Dates: start: 20110101
  7. WELLBUTRIN [Suspect]
     Indication: DEPRESSION
     Dosage: UNK
     Route: 048
  8. PRISTIQ [Suspect]
     Indication: ANXIETY
     Dosage: 100 MG, DAILY
     Route: 048
     Dates: start: 20110101
  9. ZOLOFT [Suspect]
     Indication: ANXIETY
     Dosage: 200 MG, DAILY
     Route: 048
     Dates: end: 20110101
  10. CRESTOR [Concomitant]
     Indication: BLOOD CHOLESTEROL INCREASED
     Dosage: 120 MG, DAILY
     Route: 048
  11. METFORMIN HYDROCHLORIDE/SAXAGLIPTIN [Concomitant]
     Indication: DIABETES MELLITUS
     Dosage: 50/1000 MG, 2X/DAY
     Route: 048

REACTIONS (3)
  - SUICIDAL IDEATION [None]
  - LOSS OF CONSCIOUSNESS [None]
  - PRESYNCOPE [None]
